FAERS Safety Report 6989593-8 (Version None)
Quarter: 2010Q3

REPORT INFORMATION
  Report Type: 
  Country: None (occurrence: None)
  Receive Date: 20100916
  Receipt Date: 20091230
  Transmission Date: 20110219
  Serious: Yes (Other)
  Sender: FDA-Public Use
  Company Number: US-PFIZER INC-2009308472

PATIENT
  Sex: Female
  Weight: 45.351 kg

DRUGS (3)
  1. LYRICA [Suspect]
     Indication: NERVE INJURY
     Dosage: 50 MG, 1X/DAY
     Dates: start: 20060601
  2. LYRICA [Suspect]
     Indication: NEURALGIA
  3. ASPIRIN [Concomitant]
     Dosage: UNK

REACTIONS (6)
  - BONE PAIN [None]
  - CHAPPED LIPS [None]
  - DROOLING [None]
  - INTERVERTEBRAL DISC DISORDER [None]
  - INTERVERTEBRAL DISC PROTRUSION [None]
  - LIP SWELLING [None]
